FAERS Safety Report 6811974-3 (Version None)
Quarter: 2010Q3

REPORT INFORMATION
  Report Type: 
  Country: None (occurrence: None)
  Receive Date: 20100701
  Receipt Date: 20100618
  Transmission Date: 20110219
  Serious: Yes (Hospitalization)
  Sender: FDA-Public Use
  Company Number: US-ELI_LILLY_AND_COMPANY-US201006003203

PATIENT
  Sex: Female

DRUGS (1)
  1. FORTEO [Suspect]
     Indication: OSTEOPOROSIS
     Dosage: 20 UG, DAILY (1/D)

REACTIONS (9)
  - BACK PAIN [None]
  - BLADDER OPERATION [None]
  - DYSPNOEA [None]
  - MALAISE [None]
  - POOR QUALITY SLEEP [None]
  - PROCEDURAL PAIN [None]
  - SENSATION OF HEAVINESS [None]
  - SPINAL FRACTURE [None]
  - UTERINE MALPOSITION [None]
